FAERS Safety Report 8309430-9 (Version None)
Quarter: 2012Q2

REPORT INFORMATION
  Report Type: 
  Country: None (occurrence: None)
  Receive Date: 20120420
  Receipt Date: 20120410
  Transmission Date: 20120825
  Serious: Yes (Other)
  Sender: FDA-Public Use
  Company Number: AUR-APL-2012-01696

PATIENT
  Age: 64 Year
  Sex: Female
  Weight: 77 kg

DRUGS (7)
  1. RAMIPRIL [Suspect]
     Indication: PRODUCT USED FOR UNKNOWN INDICATION
  2. LIPITOR [Suspect]
     Indication: BLOOD CHOLESTEROL INCREASED
     Dosage: 20 MG (20 MG, 1 IN 1 D), ORAL
     Route: 048
     Dates: end: 20120301
  3. HUMALOG [Concomitant]
  4. NEURONTIN [Suspect]
     Indication: ADVERSE EVENT
     Dates: start: 20120301, end: 20120301
  5. PLAVIX [Concomitant]
  6. KLONOPIN [Suspect]
     Indication: DISCOMFORT
     Dates: start: 20120301, end: 20120301
  7. FUROSEMIDE [Concomitant]

REACTIONS (9)
  - ABDOMINAL DISTENSION [None]
  - DISCOMFORT [None]
  - SOMNOLENCE [None]
  - FLUID RETENTION [None]
  - HYPERAESTHESIA [None]
  - UNEVALUABLE EVENT [None]
  - RENAL FUNCTION TEST ABNORMAL [None]
  - NEUROPATHY PERIPHERAL [None]
  - BREAST DISORDER [None]
